FAERS Safety Report 8918709 (Version 1)
Quarter: 2012Q4

REPORT INFORMATION
  Report Type: 
  Country: US (occurrence: US)
  Receive Date: 20121120
  Receipt Date: 20121120
  Transmission Date: 20130627
  Serious: No
  Sender: FDA-Public Use
  Company Number: US-ASTRAZENECA-2012SE20109

PATIENT
  Sex: Female
  Weight: 111.6 kg

DRUGS (11)
  1. NEXIUM [Suspect]
     Indication: GASTROOESOPHAGEAL REFLUX DISEASE
     Route: 048
  2. NEXIUM [Suspect]
     Indication: FLATULENCE
     Route: 048
  3. NEXIUM [Suspect]
     Indication: VOMITING
     Route: 048
  4. LISINOPRIL [Suspect]
     Route: 048
  5. PRILOSEC [Suspect]
     Indication: GASTROOESOPHAGEAL REFLUX DISEASE
     Route: 048
  6. PRILOSEC [Suspect]
     Indication: FLATULENCE
     Route: 048
  7. PRILOSEC [Suspect]
     Indication: VOMITING
     Route: 048
  8. CARVEDOLOL [Concomitant]
     Indication: CARDIAC DISORDER
  9. ISOSORBIDE [Concomitant]
     Indication: HYPERTENSION
  10. ISOSORBIDE [Concomitant]
     Indication: CARDIAC DISORDER
  11. OXYCODONE [Concomitant]
     Indication: PAIN

REACTIONS (5)
  - Cardiomegaly [Unknown]
  - Osteoarthritis [Unknown]
  - Sleep apnoea syndrome [Unknown]
  - Arthropathy [Unknown]
  - Drug ineffective [Unknown]
